FAERS Safety Report 10635850 (Version 3)
Quarter: 2015Q3

REPORT INFORMATION
  Report Type: Spontaneous
  Country: CA (occurrence: CA)
  Receive Date: 20141205
  Receipt Date: 20150826
  Transmission Date: 20151125
  Serious: Yes (Hospitalization, Other)
  Sender: FDA-Public Use
  Company Number: CA-SA-2014SA158630

PATIENT
  Sex: Female

DRUGS (12)
  1. PREDNISONE. [Suspect]
     Active Substance: PREDNISONE
     Indication: PAIN
     Route: 065
     Dates: start: 2012
  2. CELEBREX [Suspect]
     Active Substance: CELECOXIB
     Indication: PAIN
     Route: 065
     Dates: start: 2014
  3. ARAVA [Suspect]
     Active Substance: LEFLUNOMIDE
     Indication: PAIN
     Route: 065
     Dates: end: 201003
  4. DILAUDID [Concomitant]
     Active Substance: HYDROMORPHONE HYDROCHLORIDE
     Indication: RHEUMATOID ARTHRITIS
  5. HYDROMORPH CONTIN [Concomitant]
     Active Substance: HYDROMORPHONE
     Indication: RHEUMATOID ARTHRITIS
  6. LYRICA [Concomitant]
     Active Substance: PREGABALIN
     Indication: FIBROMYALGIA
     Dosage: 2 CAPSULES IN MORNING AND 1 AT NIGHT BY MOUTH
  7. ACTEMRA [Concomitant]
     Active Substance: TOCILIZUMAB
     Indication: RHEUMATOID ARTHRITIS
     Dates: start: 2013, end: 201309
  8. ENBREL [Suspect]
     Active Substance: ETANERCEPT
     Indication: PAIN
     Route: 065
     Dates: start: 200904, end: 200909
  9. CELEBREX [Suspect]
     Active Substance: CELECOXIB
     Indication: PAIN
     Route: 065
     Dates: end: 2014
  10. PLAQUENIL [Suspect]
     Active Substance: HYDROXYCHLOROQUINE SULFATE
     Indication: PAIN
     Route: 065
     Dates: start: 2012, end: 201406
  11. METHOTREXATE [Suspect]
     Active Substance: METHOTREXATE
     Indication: PAIN
     Route: 065
     Dates: end: 201003
  12. FUROSEMIDE. [Concomitant]
     Active Substance: FUROSEMIDE
     Indication: PERIPHERAL SWELLING

REACTIONS (18)
  - Memory impairment [Not Recovered/Not Resolved]
  - Dermatitis [Recovered/Resolved with Sequelae]
  - Depressed mood [Unknown]
  - Cystitis [Recovered/Resolved]
  - Seizure [Recovered/Resolved]
  - Insomnia [Unknown]
  - Deformity [Unknown]
  - Amnesia [Recovered/Resolved]
  - Pain [Unknown]
  - Psychiatric symptom [Unknown]
  - Sepsis [Unknown]
  - Encephalitis brain stem [Recovered/Resolved]
  - Immunodeficiency [Recovered/Resolved]
  - Scar [Not Recovered/Not Resolved]
  - Activities of daily living impaired [Unknown]
  - Fall [Unknown]
  - Rib fracture [Unknown]
  - Immobile [Unknown]

NARRATIVE: CASE EVENT DATE: 2010
